FAERS Safety Report 19381624 (Version 1)
Quarter: 2021Q2

REPORT INFORMATION
  Report Type: Report from Study
  Country: CA (occurrence: CA)
  Receive Date: 20210607
  Receipt Date: 20210607
  Transmission Date: 20210717
  Serious: Yes (Other)
  Sender: FDA-Public Use
  Company Number: CA-NALPROPION PHARMACEUTICALS INC.-2020-011396

PATIENT

DRUGS (14)
  1. CONTRAVE [Suspect]
     Active Substance: BUPROPION HYDROCHLORIDE\NALTREXONE HYDROCHLORIDE
     Dosage: 90/8 MG, TAKING 2 TABS ON EVEN DAYS AND 3 TABS ON ODD DAYS
     Route: 048
     Dates: start: 20200928, end: 2020
  2. CONTRAVE [Suspect]
     Active Substance: BUPROPION HYDROCHLORIDE\NALTREXONE HYDROCHLORIDE
     Dosage: TWO TABLET IN THE MORNING AND ONE TABLET IN THE EVENING ALTERNATING WITH 1 TABLET TWICE DAILY
     Route: 048
     Dates: start: 20210308
  3. CONTRAVE [Suspect]
     Active Substance: BUPROPION HYDROCHLORIDE\NALTREXONE HYDROCHLORIDE
     Dosage: 90/8 MG (1 DOSAGE FORMS, 1 IN 1 D)
     Route: 048
     Dates: start: 20200906, end: 20200912
  4. CONTRAVE [Suspect]
     Active Substance: BUPROPION HYDROCHLORIDE\NALTREXONE HYDROCHLORIDE
     Dosage: 90/8 MG, SECOND ATTEMPT (1 DOSAGE FORMS, 1 IN 12 HR)
     Route: 048
     Dates: start: 20200913, end: 202009
  5. CONTRAVE [Suspect]
     Active Substance: BUPROPION HYDROCHLORIDE\NALTREXONE HYDROCHLORIDE
     Dosage: 2 DOSAGE FORMS (1 DOSAGE FORMS, 1 IN 12 HR)
     Route: 048
     Dates: start: 2020, end: 2020
  6. CONTRAVE [Suspect]
     Active Substance: BUPROPION HYDROCHLORIDE\NALTREXONE HYDROCHLORIDE
     Dosage: 90/8 MG, FIRST ATTEMPT (1 DOSAGE FORMS,1 IN 12 HR)
     Route: 048
     Dates: start: 202003, end: 202003
  7. CONTRAVE [Suspect]
     Active Substance: BUPROPION HYDROCHLORIDE\NALTREXONE HYDROCHLORIDE
     Dosage: 90/8 MG TWICE A DAY (1 DOSAGE FORMS, 1 IN 12 HR)
     Route: 048
     Dates: start: 20210221, end: 20210307
  8. CONTRAVE [Suspect]
     Active Substance: BUPROPION HYDROCHLORIDE\NALTREXONE HYDROCHLORIDE
     Indication: WEIGHT CONTROL
     Dosage: 90/8 MG, FIRST ATTEMPT 11/MAR/2020 TO 23/MAR/2020 (APPROXIMATELY) (1 DOSAGE FORMS, 1 IN 1 D)
     Route: 048
     Dates: start: 202003, end: 202003
  9. CONTRAVE [Suspect]
     Active Substance: BUPROPION HYDROCHLORIDE\NALTREXONE HYDROCHLORIDE
     Dosage: 90/8 MG, ALTERNATING BETWEEN 2 TABS/DAY AND 3TABS/DAY, STOPPED ON APPROXIMATELY 20/DEC/2020
     Route: 048
     Dates: start: 2020, end: 20201224
  10. GLICLAZIDE [Concomitant]
     Active Substance: GLICLAZIDE
     Indication: PRODUCT USED FOR UNKNOWN INDICATION
     Dosage: 30 MG, 1 IN 1 D
     Route: 048
  11. CONTRAVE [Suspect]
     Active Substance: BUPROPION HYDROCHLORIDE\NALTREXONE HYDROCHLORIDE
     Dosage: 90/8 MG 1 TABLET EVERY MORNING (1 DOSAGE FORMS, 1 IN 1 D)
     Route: 048
     Dates: start: 20210121, end: 20210220
  12. JARDIANCE [Suspect]
     Active Substance: EMPAGLIFLOZIN
     Indication: DIABETES MELLITUS
     Dosage: DAILY
     Route: 048
  13. CONTRAVE [Suspect]
     Active Substance: BUPROPION HYDROCHLORIDE\NALTREXONE HYDROCHLORIDE
     Dosage: 90/8 MG, TILL APPROXIMATELY 23/AUG/2020 (1 IN 12 HR)
     Route: 048
     Dates: start: 202003, end: 202008
  14. CONTRAVE [Suspect]
     Active Substance: BUPROPION HYDROCHLORIDE\NALTREXONE HYDROCHLORIDE
     Dosage: 90/8 MG
     Route: 048
     Dates: end: 20210105

REACTIONS (15)
  - Glycosylated haemoglobin increased [Unknown]
  - Foot fracture [Not Recovered/Not Resolved]
  - Road traffic accident [Unknown]
  - Feeling abnormal [Unknown]
  - Drug titration error [Unknown]
  - Head discomfort [Unknown]
  - Arthralgia [Unknown]
  - Therapy interrupted [Unknown]
  - Limb injury [Unknown]
  - Thinking abnormal [Unknown]
  - Anxiety [Recovering/Resolving]
  - Stress [Not Recovered/Not Resolved]
  - Dysarthria [Not Recovered/Not Resolved]
  - Agitation [Not Recovered/Not Resolved]
  - Memory impairment [Unknown]

NARRATIVE: CASE EVENT DATE: 2020
